FAERS Safety Report 5929413-3 (Version None)
Quarter: 2008Q3

REPORT INFORMATION
  Report Type: 
  Country: None (occurrence: None)
  Receive Date: 20080924
  Receipt Date: 20080606
  Transmission Date: 20090109
  Serious: Yes (Other)
  Sender: FDA-Public Use
  Company Number: A03200802279

PATIENT
  Age: 28 Year
  Sex: Male
  Weight: 63.5036 kg

DRUGS (5)
  1. AMBIEN CR [Suspect]
     Indication: SLEEP DISORDER
     Dosage: ORAL
     Route: 048
     Dates: start: 20080301, end: 20080301
  2. DURAGESIC-75 [Suspect]
     Indication: BACK PAIN
     Dosage: 75 UG/HR ONCE EVERY 72 HOURS - TRANSDERMAL
     Route: 062
     Dates: start: 20040101
  3. QUETIAPINE FUMARATE [Concomitant]
  4. GABAPENTIN [Concomitant]
  5. OXYCODONE [Concomitant]

REACTIONS (1)
  - HALLUCINATION [None]
